FAERS Safety Report 16625479 (Version 1)
Quarter: 2019Q3

REPORT INFORMATION
  Report Type: Spontaneous
  Country: JP (occurrence: JP)
  Receive Date: 20190724
  Receipt Date: 20190724
  Transmission Date: 20191004
  Serious: Yes (Disabling)
  Sender: FDA-Public Use
  Company Number: JP-ELI_LILLY_AND_COMPANY-JP201907002539

PATIENT
  Age: 71 Year
  Sex: Female

DRUGS (4)
  1. OLUMIANT [Suspect]
     Active Substance: BARICITINIB
     Indication: RHEUMATOID ARTHRITIS
     Dosage: 4 MG, DAILY
     Route: 048
     Dates: start: 20190326, end: 20190525
  2. PROGRAF [Concomitant]
     Active Substance: TACROLIMUS\TACROLIMUS ANHYDROUS
  3. HYTHIOL [Concomitant]
  4. EDIROL [Concomitant]
     Active Substance: ELDECALCITOL

REACTIONS (1)
  - Anaemia macrocytic [Not Recovered/Not Resolved]

NARRATIVE: CASE EVENT DATE: 20190525
